FAERS Safety Report 7265061-3 (Version None)
Quarter: 2011Q1

REPORT INFORMATION
  Report Type: 
  Country: None (occurrence: None)
  Receive Date: 20110131
  Receipt Date: 20110124
  Transmission Date: 20110831
  Serious: Yes (Hospitalization)
  Sender: FDA-Public Use
  Company Number: US-TEVA-264421USA

PATIENT
  Age: 79 Year
  Sex: Male

DRUGS (3)
  1. GLIMEPIRIDE [Interacting]
  2. METRONIDAZOLE [Interacting]
  3. CIPROFLOXACIN HYDROCHLORIDE [Suspect]

REACTIONS (2)
  - HYPOGLYCAEMIA [None]
  - DRUG INTERACTION [None]
